FAERS Safety Report 25339791 (Version 1)
Quarter: 2025Q2

REPORT INFORMATION
  Report Type: Spontaneous
  Country: IL (occurrence: IL)
  Receive Date: 20250521
  Receipt Date: 20250521
  Transmission Date: 20250716
  Serious: Yes (Hospitalization)
  Sender: BEIGENE
  Company Number: IL-Medison-001300

PATIENT

DRUGS (2)
  1. BRUKINSA [Suspect]
     Active Substance: ZANUBRUTINIB
     Indication: Chronic lymphocytic leukaemia
  2. VENETOCLAX [Concomitant]
     Active Substance: VENETOCLAX

REACTIONS (1)
  - Full blood count decreased [Not Recovered/Not Resolved]
